FAERS Safety Report 6238884-7 (Version None)
Quarter: 2009Q2

REPORT INFORMATION
  Report Type: 
  Country: None (occurrence: None)
  Receive Date: 20090617
  Receipt Date: 20090617
  Transmission Date: 20091009
  Serious: Yes (Other)
  Sender: FDA-Public Use
  Company Number: None

PATIENT
  Age: 38 Year
  Sex: Female
  Weight: 106.5953 kg

DRUGS (1)
  1. ALLEGRA [Suspect]
     Indication: MULTIPLE ALLERGIES
     Dosage: 1 TABET DAILY PO
     Route: 048
     Dates: start: 20080315, end: 20090601

REACTIONS (1)
  - PRURITUS [None]
